FAERS Safety Report 4374016-8 (Version None)
Quarter: 2004Q2

REPORT INFORMATION
  Report Type: 
  Country: None (occurrence: None)
  Receive Date: 20040603
  Receipt Date: 20040511
  Transmission Date: 20050107
  Serious: Yes (Death, Hospitalization)
  Sender: FDA-Public Use
  Company Number: US_010564901

PATIENT
  Age: 55 Year
  Sex: Female
  Weight: 52 kg

DRUGS (3)
  1. GEMCITABINE HYDROCHLORIDE-IV (GEMCITABINE) [Suspect]
     Indication: NON-SMALL CELL LUNG CANCER
     Dosage: 1000 MG/M2 OTHER
     Dates: start: 20000925, end: 20001010
  2. DECARDON (DEXAMETHASONE) [Concomitant]
  3. SEROTONE (AZASETRON HYDROCHLORIDE) [Concomitant]

REACTIONS (3)
  - DISEASE PROGRESSION [None]
  - INTERSTITIAL LUNG DISEASE [None]
  - NON-SMALL CELL LUNG CANCER STAGE IIIB [None]
